FAERS Safety Report 11932488 (Version 6)
Quarter: 2018Q3

REPORT INFORMATION
  Report Type: Spontaneous
  Country: US (occurrence: US)
  Receive Date: 20160120
  Receipt Date: 20180831
  Transmission Date: 20181010
  Serious: Yes (Hospitalization, Other)
  Sender: FDA-Public Use
  Company Number: US-DSJP-DSU-2015-133691

PATIENT

DRUGS (3)
  1. TRIBENZOR [Suspect]
     Active Substance: AMLODIPINE BESYLATE\HYDROCHLOROTHIAZIDE\OLMESARTAN MEDOXOMIL
     Indication: HYPERTENSION
     Dosage: 40?5?25 MG, QD
     Route: 048
     Dates: start: 20101122
  2. BENICAR HCT [Suspect]
     Active Substance: HYDROCHLOROTHIAZIDE\OLMESARTAN MEDOXOMIL
     Indication: HYPERTENSION
     Dosage: 40/ 12.5 MG, QD
     Dates: start: 2005, end: 20090518
  3. BENICAR [Suspect]
     Active Substance: OLMESARTAN MEDOXOMIL
     Indication: PRODUCT USED FOR UNKNOWN INDICATION
     Dosage: UNK
     Dates: start: 20060101, end: 20090828

REACTIONS (7)
  - Multiple organ dysfunction syndrome [Unknown]
  - Sprue-like enteropathy [Recovering/Resolving]
  - Acute kidney injury [Unknown]
  - Gastrooesophageal reflux disease [Unknown]
  - Diverticulum [Not Recovered/Not Resolved]
  - Large intestine polyp [Recovered/Resolved]
  - Hypotension [Unknown]

NARRATIVE: CASE EVENT DATE: 20071212
